FAERS Safety Report 9395701 (Version 1)
Quarter: 2013Q3

REPORT INFORMATION
  Report Type: Spontaneous
  Country: FR (occurrence: FR)
  Receive Date: 20130711
  Receipt Date: 20130711
  Transmission Date: 20140515
  Serious: Yes (Hospitalization)
  Sender: FDA-Public Use
  Company Number: FR-ASTRAZENECA-2013SE50772

PATIENT
  Age: 69 Month
  Sex: Male

DRUGS (48)
  1. MOPRAL [Suspect]
     Route: 048
     Dates: start: 20110905
  2. METHOTREXATE [Suspect]
     Route: 037
     Dates: start: 20110905
  3. METHOTREXATE [Suspect]
     Dosage: TRIPLE INJECTION
     Route: 037
     Dates: start: 20110916
  4. HYDROCORTISONE HEMISUCCINATE [Suspect]
     Indication: ACUTE LYMPHOCYTIC LEUKAEMIA
     Route: 037
     Dates: start: 20110916
  5. VINCRISTINE [Suspect]
     Indication: ACUTE LYMPHOCYTIC LEUKAEMIA
     Route: 042
     Dates: start: 20110912, end: 20110912
  6. VINCRISTINE [Suspect]
     Indication: ACUTE LYMPHOCYTIC LEUKAEMIA
     Route: 042
     Dates: start: 20110919, end: 20110919
  7. VINCRISTINE [Suspect]
     Indication: ACUTE LYMPHOCYTIC LEUKAEMIA
     Route: 042
     Dates: start: 20110927, end: 20110927
  8. VINCRISTINE [Suspect]
     Indication: ACUTE LYMPHOCYTIC LEUKAEMIA
     Route: 042
     Dates: start: 20111004
  9. VINCRISTINE [Suspect]
     Indication: ACUTE LYMPHOCYTIC LEUKAEMIA
     Dosage: UNKNOWN DOSE, WEEKLY
     Route: 042
     Dates: start: 201202
  10. CERUBIDINE [Suspect]
     Indication: ACUTE LYMPHOCYTIC LEUKAEMIA
     Route: 042
     Dates: start: 20110912, end: 20110912
  11. CERUBIDINE [Suspect]
     Indication: ACUTE LYMPHOCYTIC LEUKAEMIA
     Route: 042
     Dates: start: 20110919, end: 20110919
  12. CERUBIDINE [Suspect]
     Indication: ACUTE LYMPHOCYTIC LEUKAEMIA
     Route: 042
     Dates: start: 20110927, end: 20110927
  13. CERUBIDINE [Suspect]
     Indication: ACUTE LYMPHOCYTIC LEUKAEMIA
     Route: 042
     Dates: start: 20111004
  14. KIDROLASE [Suspect]
     Indication: ACUTE LYMPHOCYTIC LEUKAEMIA
     Route: 042
     Dates: start: 20110916, end: 20110916
  15. KIDROLASE [Suspect]
     Indication: ACUTE LYMPHOCYTIC LEUKAEMIA
     Route: 042
     Dates: start: 20110919, end: 20110919
  16. KIDROLASE [Suspect]
     Indication: ACUTE LYMPHOCYTIC LEUKAEMIA
     Route: 042
     Dates: start: 20110922, end: 20110922
  17. KIDROLASE [Suspect]
     Indication: ACUTE LYMPHOCYTIC LEUKAEMIA
     Route: 042
     Dates: start: 20110927, end: 20110927
  18. KIDROLASE [Suspect]
     Indication: ACUTE LYMPHOCYTIC LEUKAEMIA
     Route: 042
     Dates: start: 20110930, end: 20110930
  19. KIDROLASE [Suspect]
     Indication: ACUTE LYMPHOCYTIC LEUKAEMIA
     Route: 042
     Dates: start: 20111004, end: 20111004
  20. KIDROLASE [Suspect]
     Indication: ACUTE LYMPHOCYTIC LEUKAEMIA
     Route: 042
     Dates: start: 20111014, end: 20111014
  21. ARACYTINE [Suspect]
     Indication: ACUTE LYMPHOCYTIC LEUKAEMIA
     Route: 037
     Dates: start: 20110916
  22. SOLUPRED [Suspect]
     Dates: start: 20110905, end: 20111002
  23. SOLUPRED [Suspect]
     Dosage: DECREASED AT DAY 29
     Dates: start: 20111003, end: 20111015
  24. BACTRIM [Suspect]
     Dosage: 1 DF, THREE TIMES A WEEK (2.5 SPOON-MEASUREMENT ON MONDAY, WEDNESDAY AND FRIDAY)
     Route: 048
     Dates: start: 20110905
  25. SODIUM BICARBONATE [Suspect]
     Route: 002
     Dates: start: 20110905
  26. ZOPHREN [Suspect]
     Dosage: 4 MG EVERY 12 HOURS IF NECESSARY
     Route: 048
     Dates: start: 20110905
  27. ROCEPHINE [Concomitant]
     Dates: start: 20110903, end: 20110906
  28. AMIKLIN [Concomitant]
     Dates: start: 20110903, end: 20110906
  29. AMIKLIN [Concomitant]
     Dates: start: 20110925, end: 20111003
  30. AMIKLIN [Concomitant]
     Dates: start: 20111010
  31. TAZOCILLINE [Concomitant]
     Dates: start: 20110907, end: 20110915
  32. TAZOCILLINE [Concomitant]
     Dates: start: 20110925, end: 20111003
  33. TAZOCILLINE [Concomitant]
     Dates: start: 20111010
  34. ACLOTINE [Concomitant]
  35. TARGOCID [Concomitant]
     Dates: start: 20110925, end: 20111003
  36. TARGOCID [Concomitant]
     Dates: start: 20111010
  37. PERFALGAN [Concomitant]
     Dates: start: 20111010
  38. CYCLOPHOSPHAMIDE [Concomitant]
     Dates: start: 20111019
  39. CYCLOPHOSPHAMIDE [Concomitant]
     Dates: start: 201202
  40. CYTARABINE [Concomitant]
     Dosage: 1 DF, WEEKLY
     Route: 042
     Dates: start: 20111019
  41. CYTARABINE [Concomitant]
     Dosage: 1 DF, WEEKLY
     Route: 042
     Dates: start: 201202
  42. PURINETHOL [Concomitant]
     Dates: start: 20111019
  43. DEXAMETHASONE [Concomitant]
     Route: 048
     Dates: start: 201202
  44. DOXORUBICINE [Concomitant]
     Dates: start: 201202
  45. ERWINIA [Concomitant]
     Dates: start: 201202
  46. LANVIS [Concomitant]
     Route: 048
     Dates: start: 201202
  47. CHEMOTHERAPY [Concomitant]
     Route: 024
     Dates: start: 20111019
  48. CHEMOTHERAPY [Concomitant]
     Route: 024
     Dates: start: 201202

REACTIONS (2)
  - Febrile bone marrow aplasia [Recovered/Resolved]
  - Device related infection [Unknown]
